FAERS Safety Report 20691745 (Version 1)
Quarter: 2022Q2

REPORT INFORMATION
  Report Type: Spontaneous
  Country: US (occurrence: US)
  Receive Date: 20220408
  Receipt Date: 20220408
  Transmission Date: 20220721
  Serious: No
  Sender: FDA-Public Use
  Company Number: US-TEVA-2022-US-2024134

PATIENT
  Age: 84 Year
  Sex: Female

DRUGS (4)
  1. WARFARIN [Suspect]
     Active Substance: WARFARIN
     Indication: Pulmonary thrombosis
     Route: 065
  2. KEFLEX [Suspect]
     Active Substance: CEPHALEXIN
     Route: 065
  3. PREMARIN [Suspect]
     Active Substance: ESTROGENS, CONJUGATED
     Indication: Vaginal disorder
     Route: 065
  4. MICONAZOLE [Concomitant]
     Active Substance: MICONAZOLE

REACTIONS (6)
  - Feeling abnormal [Unknown]
  - Discomfort [Unknown]
  - Drug level decreased [Unknown]
  - Vulvovaginal burning sensation [Unknown]
  - Fall [Unknown]
  - Inability to afford medication [Unknown]
